FAERS Safety Report 10065376 (Version 2)
Quarter: 2014Q2

REPORT INFORMATION
  Report Type: Spontaneous
  Country: CA (occurrence: CA)
  Receive Date: 20140408
  Receipt Date: 20140425
  Transmission Date: 20141212
  Serious: Yes (Other)
  Sender: FDA-Public Use
  Company Number: CA-GLAXOSMITHKLINE-A1067341A

PATIENT
  Age: 75 Year
  Sex: Female

DRUGS (1)
  1. FLOVENT [Suspect]
     Indication: PRODUCT USED FOR UNKNOWN INDICATION
     Dosage: 2PUFF AT NIGHT
     Route: 055

REACTIONS (4)
  - Ill-defined disorder [Unknown]
  - Overdose [Unknown]
  - Choking [Unknown]
  - Product quality issue [Unknown]
